FAERS Safety Report 10558669 (Version 1)
Quarter: 2014Q4

REPORT INFORMATION
  Report Type: Spontaneous
  Country: FR (occurrence: FR)
  Receive Date: 20141031
  Receipt Date: 20141031
  Transmission Date: 20150529
  Serious: Yes (Other)
  Sender: FDA-Public Use
  Company Number: FR-ASTRAZENECA-2014SE80972

PATIENT
  Age: 707 Month
  Sex: Male
  Weight: 67 kg

DRUGS (17)
  1. INEXIUM [Suspect]
     Active Substance: ESOMEPRAZOLE
     Indication: HAEMATOCHEZIA
     Route: 048
     Dates: start: 20141006
  2. TAHOR [Concomitant]
     Active Substance: ATORVASTATIN CALCIUM
  3. CORTANCYL [Concomitant]
     Active Substance: PREDNISONE
  4. PLAVIX [Concomitant]
     Active Substance: CLOPIDOGREL BISULFATE
  5. EUPRESSYL [Concomitant]
     Active Substance: URAPIDIL
  6. STILNOX [Concomitant]
     Active Substance: ZOLPIDEM TARTRATE
  7. ADVAGRAF [Concomitant]
     Active Substance: TACROLIMUS
  8. RENVELA [Concomitant]
     Active Substance: SEVELAMER CARBONATE
  9. CELLCEPT [Concomitant]
     Active Substance: MYCOPHENOLATE MOFETIL\MYCOPHENOLATE MOFETIL HYDROCHLORIDE
  10. BACTRIM [Concomitant]
     Active Substance: SULFAMETHOXAZOLE\TRIMETHOPRIM
  11. INSPRA [Concomitant]
     Active Substance: EPLERENONE
  12. BISOPROLOL [Concomitant]
     Active Substance: BISOPROLOL
  13. EXFORGE [Concomitant]
     Active Substance: AMLODIPINE BESYLATE\VALSARTAN
  14. INEXIUM [Suspect]
     Active Substance: ESOMEPRAZOLE
     Indication: HAEMATOCHEZIA
     Route: 048
     Dates: end: 201409
  15. INEXIUM [Suspect]
     Active Substance: ESOMEPRAZOLE
     Indication: HAEMATOCHEZIA
     Route: 048
     Dates: start: 201409, end: 20141006
  16. KARDEGIC [Concomitant]
     Active Substance: ASPIRIN LYSINE
  17. SODIUM BICARBONATE. [Concomitant]
     Active Substance: SODIUM BICARBONATE

REACTIONS (2)
  - Tremor [Recovered/Resolved]
  - Dyskinesia [Recovering/Resolving]

NARRATIVE: CASE EVENT DATE: 201409
